FAERS Safety Report 4301667-9 (Version None)
Quarter: 2004Q1

REPORT INFORMATION
  Report Type: 
  Country: None (occurrence: None)
  Receive Date: 20040219
  Receipt Date: 20040203
  Transmission Date: 20041129
  Serious: Yes (Hospitalization)
  Sender: FDA-Public Use
  Company Number: 701031

PATIENT
  Age: 74 Year
  Sex: Female

DRUGS (6)
  1. AMEVIVE [Suspect]
     Indication: PSORIASIS
     Dosage: 15 MG QW IM
     Route: 030
     Dates: start: 20030611, end: 20030806
  2. TRICOR [Concomitant]
  3. GLUCOPHAGE [Concomitant]
  4. TOPROL-XL [Concomitant]
  5. CALCIUM SUPPLEMENT [Concomitant]
  6. MULTIPLE VITAMIN [Concomitant]

REACTIONS (30)
  - ACTIVATED PARTIAL THROMBOPLASTIN TIME PROLONGED [None]
  - ASTHENIA [None]
  - BLOOD ALBUMIN DECREASED [None]
  - BLOOD GLUCOSE INCREASED [None]
  - BLOOD SODIUM DECREASED [None]
  - CD4 LYMPHOCYTES DECREASED [None]
  - DENERVATION ATROPHY [None]
  - FALL [None]
  - GAIT DISTURBANCE [None]
  - HAEMANGIOMA [None]
  - HAEMOGLOBIN URINE [None]
  - INTERVERTEBRAL DISC DEGENERATION [None]
  - INTERVERTEBRAL DISC PROTRUSION [None]
  - LETHARGY [None]
  - LYMPHOCYTE PERCENTAGE DECREASED [None]
  - NERVE ROOT COMPRESSION [None]
  - NEUTROPHIL PERCENTAGE INCREASED [None]
  - OXYGEN SATURATION DECREASED [None]
  - PAIN IN EXTREMITY [None]
  - PO2 DECREASED [None]
  - PROTEIN TOTAL DECREASED [None]
  - PYREXIA [None]
  - RADICULOPATHY [None]
  - RED BLOOD CELL SEDIMENTATION RATE INCREASED [None]
  - RED BLOOD CELLS URINE POSITIVE [None]
  - RED CELL DISTRIBUTION WIDTH INCREASED [None]
  - SPINAL CORD INJURY [None]
  - SYNCOPE [None]
  - SYNCOPE VASOVAGAL [None]
  - URINARY INCONTINENCE [None]
